FAERS Safety Report 6570585-8 (Version None)
Quarter: 2010Q1

REPORT INFORMATION
  Report Type: 
  Country: None (occurrence: None)
  Receive Date: 20100204
  Receipt Date: 20100127
  Transmission Date: 20100710
  Serious: Yes (Hospitalization)
  Sender: FDA-Public Use
  Company Number: US-ROCHE-679697

PATIENT
  Sex: Female
  Weight: 61.7 kg

DRUGS (12)
  1. BEVACIZUMAB [Suspect]
     Indication: NON-SMALL CELL LUNG CANCER
     Dosage: DOSE AS PER PROTOCOL
     Route: 065
     Dates: start: 20090730, end: 20091119
  2. IXABEPILONE [Suspect]
     Indication: NON-SMALL CELL LUNG CANCER
     Dosage: DOSE AS PER PROTOCOL
     Route: 065
     Dates: start: 20090730, end: 20091119
  3. CARBOPLATIN [Suspect]
     Indication: NON-SMALL CELL LUNG CANCER
     Dosage: AUC = 6 INTRAVENOUSLY (IV) ON DAY 1 OF ONE 21-DAY TREATMENT CYCLE.
     Route: 065
     Dates: start: 20090730, end: 20091119
  4. CARAFATE [Concomitant]
     Dates: start: 20090727
  5. PERCOCET [Concomitant]
     Dates: start: 20091119
  6. XANAX [Concomitant]
     Dates: start: 20091208
  7. COMPAZINE [Concomitant]
     Dates: start: 20091126
  8. PREDNISONE [Concomitant]
     Dates: start: 20091203
  9. POTASSIUM CHLORIDE [Concomitant]
     Dates: start: 20090806
  10. CELEXA [Concomitant]
     Dates: start: 20091229
  11. FLEXERIL [Concomitant]
     Dosage: FLEXERAL
  12. HYDROCHLOROTHIAZIDE [Concomitant]

REACTIONS (1)
  - NEUROTOXICITY [None]
